FAERS Safety Report 5502518-7 (Version None)
Quarter: 2007Q4

REPORT INFORMATION
  Report Type: 
  Country: None (occurrence: None)
  Receive Date: 20071030
  Receipt Date: 20071029
  Transmission Date: 20080405
  Serious: Yes (Hospitalization, Other)
  Sender: FDA-Public Use
  Company Number: US-BOEHRINGER INGELHEIM PHARMACEUTICALS, INC.-2007-BP-17515PF

PATIENT
  Sex: Female

DRUGS (12)
  1. SPIRIVA [Suspect]
     Indication: CHRONIC OBSTRUCTIVE PULMONARY DISEASE
     Route: 055
  2. SPIRIVA [Suspect]
     Indication: LUNG NEOPLASM MALIGNANT
  3. ROBITUSSIN AC [Concomitant]
  4. PERIACTIN [Concomitant]
  5. XANAX [Concomitant]
  6. PAXIL [Concomitant]
  7. VITAMIN B-12 [Concomitant]
  8. POTASSIUM CHLORIDE [Concomitant]
  9. MULTIPLE VITAMINS WITH IRON [Concomitant]
  10. MUCINEX DM [Concomitant]
  11. LORTAB [Concomitant]
     Indication: PAIN
  12. ALBUTEROL [Concomitant]
     Route: 055

REACTIONS (3)
  - LUNG NEOPLASM MALIGNANT [None]
  - OVERDOSE [None]
  - TRACHEAL CANCER [None]
